FAERS Safety Report 7971592-0 (Version None)
Quarter: 2011Q4

REPORT INFORMATION
  Report Type: 
  Country: None (occurrence: None)
  Receive Date: 20111212
  Receipt Date: 20111207
  Transmission Date: 20120403
  Serious: Yes (Other)
  Sender: FDA-Public Use
  Company Number: JP-PFIZER INC-2011298038

PATIENT
  Age: 14 Year
  Sex: Male
  Weight: 56 kg

DRUGS (4)
  1. PREDNISOLONE [Concomitant]
  2. METHYLPREDNISOLONE [Concomitant]
  3. NORVASC [Suspect]
     Indication: HYPERTENSION
  4. MIZORIBINE [Concomitant]

REACTIONS (1)
  - ASCITES [None]
